FAERS Safety Report 6383405-1 (Version None)
Quarter: 2009Q4

REPORT INFORMATION
  Report Type: 
  Country: None (occurrence: None)
  Receive Date: 20091001
  Receipt Date: 20090924
  Transmission Date: 20100525
  Serious: Yes (Other)
  Sender: FDA-Public Use
  Company Number: US-TEVA-210175USA

PATIENT
  Sex: Female

DRUGS (1)
  1. CLARAVIS [Suspect]
     Route: 048
     Dates: start: 20090728, end: 20090901

REACTIONS (4)
  - DEPRESSION [None]
  - DIARRHOEA [None]
  - OVERDOSE [None]
  - SUICIDE ATTEMPT [None]
